FAERS Safety Report 7456499-X (Version None)
Quarter: 2011Q2

REPORT INFORMATION
  Report Type: 
  Country: None (occurrence: None)
  Receive Date: 20110503
  Receipt Date: 20110422
  Transmission Date: 20111010
  Serious: Yes (Other)
  Sender: FDA-Public Use
  Company Number: US-CELGENEUS-163-21880-11031027

PATIENT
  Sex: Male
  Weight: 59 kg

DRUGS (3)
  1. REVLIMID [Suspect]
     Dosage: 15 MILLIGRAM
     Route: 048
     Dates: start: 20101101, end: 20110120
  2. REVLIMID [Suspect]
     Dosage: 25 MILLIGRAM
     Route: 048
     Dates: start: 20100914
  3. REVLIMID [Suspect]
     Dosage: 10 MILLIGRAM
     Route: 048
     Dates: start: 20110304

REACTIONS (7)
  - HAEMOPTYSIS [None]
  - ARTHRALGIA [None]
  - CONTUSION [None]
  - PLATELET COUNT DECREASED [None]
  - DYSPNOEA EXERTIONAL [None]
  - RASH [None]
  - EPISTAXIS [None]
